FAERS Safety Report 19753591 (Version 1)
Quarter: 2021Q3

REPORT INFORMATION
  Report Type: Spontaneous
  Country: US (occurrence: US)
  Receive Date: 20210826
  Receipt Date: 20210826
  Transmission Date: 20211014
  Serious: No
  Sender: FDA-Public Use
  Company Number: US-HORIZON THERAPEUTICS-HZN-2021-002466

PATIENT
  Sex: Female

DRUGS (2)
  1. METHIMAZOLE. [Concomitant]
     Active Substance: METHIMAZOLE
     Indication: PRODUCT USED FOR UNKNOWN INDICATION
     Dosage: UNK
     Route: 065
  2. TEPEZZA [Suspect]
     Active Substance: TEPROTUMUMAB-TRBW
     Indication: ENDOCRINE OPHTHALMOPATHY
     Dosage: UNK (INFUSION)
     Route: 065
     Dates: start: 202008, end: 202101

REACTIONS (5)
  - Irritability [Unknown]
  - Incorrect product administration duration [Unknown]
  - Diplopia [Unknown]
  - Infusion site haemorrhage [Unknown]
  - Corneal scar [Unknown]
